FAERS Safety Report 7988128-0 (Version None)
Quarter: 2011Q4

REPORT INFORMATION
  Report Type: 
  Country: None (occurrence: None)
  Receive Date: 20111216
  Receipt Date: 20110615
  Transmission Date: 20120403
  Serious: No
  Sender: FDA-Public Use
  Company Number: US-BRISTOL-MYERS SQUIBB COMPANY-15834732

PATIENT
  Age: 80 Year
  Sex: Female

DRUGS (3)
  1. LEXAPRO [Concomitant]
  2. ABILIFY [Suspect]
     Dosage: 1 TABS
     Dates: start: 20110101
  3. LORAZEPAM [Concomitant]

REACTIONS (1)
  - DIZZINESS [None]
